FAERS Safety Report 7319580-1 (Version None)
Quarter: 2011Q1

REPORT INFORMATION
  Report Type: 
  Country: None (occurrence: None)
  Receive Date: 20110228
  Receipt Date: 20100601
  Transmission Date: 20110831
  Serious: Yes (Other)
  Sender: FDA-Public Use
  Company Number: A0862238A

PATIENT
  Age: 59 Year
  Sex: Male

DRUGS (6)
  1. DILANTIN [Concomitant]
  2. COUMADIN [Concomitant]
  3. CYMBALTA [Concomitant]
  4. VICODIN [Concomitant]
  5. LAMOTRIGINE [Suspect]
     Indication: BIPOLAR DISORDER
     Dosage: 300MG TWICE PER DAY
     Route: 048
  6. SIMVASTATIN [Concomitant]

REACTIONS (3)
  - DEPRESSION [None]
  - SUICIDAL IDEATION [None]
  - HALLUCINATION [None]
